FAERS Safety Report 11884819 (Version 4)
Quarter: 2016Q1

REPORT INFORMATION
  Report Type: Report from Study
  Country: IE (occurrence: IE)
  Receive Date: 20160104
  Receipt Date: 20160324
  Transmission Date: 20160526
  Serious: Yes (Hospitalization)
  Sender: FDA-Public Use
  Company Number: IE-BIOGEN-2015BI00165255

PATIENT
  Age: 1 Year
  Sex: Male
  Weight: 11.3 kg

DRUGS (2)
  1. RFIXFC [Suspect]
     Active Substance: EFTRENONACOG ALFA
     Indication: HAEMOPHILIA
     Route: 042
     Dates: start: 20141128
  2. RFIXFC [Suspect]
     Active Substance: EFTRENONACOG ALFA
     Route: 042
     Dates: start: 20151222

REACTIONS (2)
  - Fall [Recovered/Resolved]
  - Head injury [Recovered/Resolved]

NARRATIVE: CASE EVENT DATE: 20151222
